FAERS Safety Report 10703592 (Version 3)
Quarter: 2015Q1

REPORT INFORMATION
  Report Type: Spontaneous
  Country: JP (occurrence: JP)
  Receive Date: 20150112
  Receipt Date: 20150121
  Transmission Date: 20150721
  Serious: Yes (Other)
  Sender: FDA-Public Use
  Company Number: JP-BRISTOL-MYERS SQUIBB COMPANY-BMS-2014-000257

PATIENT
  Age: 68 Year
  Sex: Female

DRUGS (10)
  1. EXENATIDE [Concomitant]
     Active Substance: EXENATIDE
  2. ADALAT [Concomitant]
     Active Substance: NIFEDIPINE
  3. MICARDIS [Concomitant]
     Active Substance: TELMISARTAN
  4. FORXIGA [Suspect]
     Active Substance: DAPAGLIFLOZIN
     Indication: TYPE 2 DIABETES MELLITUS
     Dosage: 5 MG, QD
     Route: 048
     Dates: start: 20140902, end: 20141202
  5. KERLONG [Concomitant]
     Active Substance: BETAXOLOL HYDROCHLORIDE
  6. DEPAKENE [Concomitant]
     Active Substance: VALPROIC ACID
  7. METGLUCO [Concomitant]
     Active Substance: METFORMIN HYDROCHLORIDE
     Dosage: 500 MG, UNK
     Route: 048
  8. AMARYL [Concomitant]
     Active Substance: GLIMEPIRIDE
  9. CRESTOR [Concomitant]
     Active Substance: ROSUVASTATIN CALCIUM
  10. BYDUREON [Concomitant]
     Active Substance: EXENATIDE

REACTIONS (1)
  - Loss of consciousness [Recovering/Resolving]

NARRATIVE: CASE EVENT DATE: 20141128
